FAERS Safety Report 14395139 (Version 2)
Quarter: 2018Q1

REPORT INFORMATION
  Report Type: Spontaneous
  Country: GB (occurrence: GB)
  Receive Date: 20180116
  Receipt Date: 20180130
  Transmission Date: 20180509
  Serious: Yes (Other)
  Sender: FDA-Public Use
  Company Number: GB-009507513-1801GBR004543

PATIENT
  Sex: Female

DRUGS (1)
  1. MAXALT [Suspect]
     Active Substance: RIZATRIPTAN BENZOATE
     Indication: MIGRAINE
     Dosage: UNK
     Route: 048

REACTIONS (8)
  - Groin pain [Recovered/Resolved]
  - Internal haemorrhage [Recovered/Resolved]
  - Drug ineffective [Recovered/Resolved]
  - Contusion [Recovered/Resolved]
  - Accident [Recovered/Resolved]
  - Headache [Recovered/Resolved]
  - Muscle rupture [Recovered/Resolved]
  - Pain in extremity [Recovered/Resolved]
